FAERS Safety Report 25878046 (Version 2)
Quarter: 2025Q4

REPORT INFORMATION
  Report Type: Report from Study
  Country: US (occurrence: US)
  Receive Date: 20251003
  Receipt Date: 20251106
  Transmission Date: 20260117
  Serious: Yes (Other)
  Sender: OTSUKA
  Company Number: US-MMM-Otsuka-54EPDAL2

PATIENT
  Age: 36 Year
  Sex: Female

DRUGS (2)
  1. TOLVAPTAN [Suspect]
     Active Substance: TOLVAPTAN
     Indication: Congenital cystic kidney disease
     Dosage: 45 MG, QD (IN THE MORNING)
     Route: 065
     Dates: start: 20250711, end: 2025
  2. TOLVAPTAN [Suspect]
     Active Substance: TOLVAPTAN
     Dosage: 15 MG, QD (IN THE EVENING)
     Route: 065
     Dates: start: 20250711, end: 2025

REACTIONS (2)
  - Hysterectomy [Unknown]
  - Umbilical hernia repair [Unknown]

NARRATIVE: CASE EVENT DATE: 20251001
